FAERS Safety Report 4330441-2 (Version None)
Quarter: 2004Q1

REPORT INFORMATION
  Report Type: 
  Country: None (occurrence: None)
  Receive Date: 20040330
  Receipt Date: 20040317
  Transmission Date: 20041129
  Serious: Yes (Hospitalization)
  Sender: FDA-Public Use
  Company Number: FI-JNJFOC-20040303864

PATIENT
  Age: 25 Year
  Sex: Female

DRUGS (2)
  1. REMICADE [Suspect]
     Indication: JUVENILE ARTHRITIS
     Dosage: INTRAVENOUS
     Route: 042
     Dates: start: 20000101, end: 20021001
  2. ARAVA [Suspect]
     Indication: JUVENILE ARTHRITIS
     Dates: end: 20021001

REACTIONS (7)
  - CUTANEOUS VASCULITIS [None]
  - CYANOSIS [None]
  - DRUG INTERACTION [None]
  - NEOPLASM [None]
  - STAPHYLOCOCCAL INFECTION [None]
  - SYNOVITIS [None]
  - WEIGHT DECREASED [None]
